FAERS Safety Report 5239043-7 (Version None)
Quarter: 2007Q1

REPORT INFORMATION
  Report Type: 
  Country: None (occurrence: None)
  Receive Date: 20061208
  Receipt Date: 20050630
  Transmission Date: 20070707
  Serious: Yes (Other)
  Sender: FDA-Public Use
  Company Number: 2005UW09888

PATIENT
  Age: 55 Year
  Sex: Female
  Weight: 68.038 kg

DRUGS (5)
  1. CRESTOR [Suspect]
     Dosage: 10 MG PO
     Route: 048
     Dates: start: 20041218
  2. EVISTA [Concomitant]
  3. MULTI-VITAMIN [Concomitant]
  4. ASCORBIC ACID [Concomitant]
  5. VITAMIN E [Concomitant]

REACTIONS (1)
  - FLANK PAIN [None]
